FAERS Safety Report 5898201-9 (Version None)
Quarter: 2008Q3

REPORT INFORMATION
  Report Type: 
  Country: None (occurrence: None)
  Receive Date: 20080925
  Receipt Date: 20080915
  Transmission Date: 20090109
  Serious: Yes (Death, Hospitalization, Other)
  Sender: FDA-Public Use
  Company Number: US-ELI_LILLY_AND_COMPANY-US200806004449

PATIENT
  Sex: Male

DRUGS (21)
  1. GEMZAR [Suspect]
     Indication: NON-SMALL CELL LUNG CANCER
     Dates: start: 20070101
  2. ALIMTA [Suspect]
     Indication: NON-SMALL CELL LUNG CANCER
     Dosage: 500 MG/M2, 3 MONTHS DURATION
     Route: 042
     Dates: start: 20080101, end: 20080610
  3. VITAMIN B-12 [Concomitant]
     Dates: start: 20080603, end: 20080603
  4. ALOXI [Concomitant]
     Indication: NAUSEA
  5. FOLIC ACID [Concomitant]
     Dosage: 1 D/F, UNK
     Route: 048
     Dates: start: 20080603, end: 20080601
  6. DEXAMETHASONE [Concomitant]
  7. AMBIEN [Concomitant]
     Dosage: 10 MG, AS NEEDED,HS
     Route: 048
     Dates: start: 20080430, end: 20080101
  8. LASIX [Concomitant]
     Route: 048
     Dates: start: 20080430, end: 20080601
  9. K-DUR [Concomitant]
     Dosage: 40 MEQ, DAILY (1/D)
     Route: 048
     Dates: start: 20080430, end: 20080601
  10. PRILOSEC [Concomitant]
     Route: 048
     Dates: start: 20080430, end: 20080601
  11. CELEBREX [Concomitant]
     Route: 048
     Dates: start: 20080430, end: 20080601
  12. FORADIL [Concomitant]
     Route: 055
     Dates: start: 20080430, end: 20080601
  13. AMIODARONE HCL [Concomitant]
     Route: 048
     Dates: start: 20080430, end: 20080601
  14. COUMADIN [Concomitant]
     Indication: ATRIAL FIBRILLATION
     Route: 048
     Dates: start: 20080520, end: 20080601
  15. PROSTAT [Concomitant]
     Route: 048
     Dates: start: 20080513, end: 20080601
  16. LORTAB [Concomitant]
     Dosage: 1 TAB, 5/500 Q 12 HRS, AS NEEDED
     Route: 048
     Dates: end: 20080601
  17. MIRALAX [Concomitant]
     Indication: CONSTIPATION
     Dosage: (1/D)
     Dates: start: 20080430, end: 20080601
  18. DARVOCET-N 100 [Concomitant]
     Dosage: 100 MG, Q 4 HRS AS NEEDED
     Dates: start: 20080430, end: 20080601
  19. ATROVENT [Concomitant]
     Dates: start: 20080430, end: 20080601
  20. ALBUTEROL [Concomitant]
     Dates: start: 20080430, end: 20080601
  21. NAVELBINE [Concomitant]
     Indication: NON-SMALL CELL LUNG CANCER

REACTIONS (11)
  - ATRIAL FIBRILLATION [None]
  - DYSPNOEA [None]
  - FEBRILE NEUTROPENIA [None]
  - HAEMORRHAGE [None]
  - HYPERKALAEMIA [None]
  - INSOMNIA [None]
  - MALNUTRITION [None]
  - MUSCLE ATROPHY [None]
  - MUSCULAR WEAKNESS [None]
  - OBSTRUCTIVE AIRWAYS DISORDER [None]
  - TREATMENT FAILURE [None]
